FAERS Safety Report 22085617 (Version 1)
Quarter: 2023Q1

REPORT INFORMATION
  Report Type: Spontaneous
  Country: US (occurrence: US)
  Receive Date: 20230310
  Receipt Date: 20230310
  Transmission Date: 20230417
  Serious: No
  Sender: FDA-Public Use
  Company Number: US-SA-SAC20230307001022

PATIENT
  Sex: Male

DRUGS (1)
  1. DUPIXENT [Suspect]
     Active Substance: DUPILUMAB
     Dosage: 300MG, FREQUENCY-OTHER
     Route: 058

REACTIONS (4)
  - Injection site haemorrhage [Unknown]
  - Oropharyngeal discomfort [Unknown]
  - Product dose omission issue [Unknown]
  - Injection site swelling [Unknown]
